FAERS Safety Report 21028583 (Version 1)
Quarter: 2022Q2

REPORT INFORMATION
  Report Type: Spontaneous
  Country: US (occurrence: US)
  Receive Date: 20220630
  Receipt Date: 20220630
  Transmission Date: 20220720
  Serious: No
  Sender: FDA-Public Use
  Company Number: US-ANIPHARMA-2022-US-002479

PATIENT
  Sex: Female

DRUGS (1)
  1. METHAZOLAMIDE [Suspect]
     Active Substance: METHAZOLAMIDE
     Indication: Glaucoma
     Dosage: TWO 50 MG TABLETS TWICE PER DAY (200MG TOTAL PER DAY)
     Route: 048
     Dates: start: 202105

REACTIONS (6)
  - Vision blurred [Unknown]
  - Tinnitus [Unknown]
  - Nausea [Unknown]
  - Asthenia [Unknown]
  - Fatigue [Unknown]
  - Weight decreased [Unknown]

NARRATIVE: CASE EVENT DATE: 20210501
